FAERS Safety Report 8516083-3 (Version None)
Quarter: 2012Q3

REPORT INFORMATION
  Report Type: 
  Country: None (occurrence: None)
  Receive Date: 20120717
  Receipt Date: 20120712
  Transmission Date: 20120928
  Serious: Yes (Hospitalization, Other)
  Sender: FDA-Public Use
  Company Number: GB-PFIZER INC-GB-WYE-G04663709

PATIENT
  Age: 85 Year
  Sex: Female

DRUGS (4)
  1. ZOPICLONE [Concomitant]
     Dosage: UNK
  2. EDRONAX [Concomitant]
     Dosage: UNK
  3. EFFEXOR [Suspect]
     Dosage: UNK
     Route: 048
  4. LORAZEPAM [Concomitant]
     Dosage: UNK

REACTIONS (1)
  - MYELODYSPLASTIC SYNDROME [None]
